FAERS Safety Report 12099508 (Version 1)
Quarter: 2016Q1

REPORT INFORMATION
  Report Type: Spontaneous
  Country: US (occurrence: US)
  Receive Date: 20160222
  Receipt Date: 20160222
  Transmission Date: 20160526
  Serious: No
  Sender: FDA-Public Use
  Company Number: US-PFIZER INC-2016050650

PATIENT
  Age: 80 Year
  Sex: Female
  Weight: 78.93 kg

DRUGS (1)
  1. SULFAMETHOXAZOLE/TRIMETHOPRIM [Suspect]
     Active Substance: SULFAMETHOXAZOLE\TRIMETHOPRIM
     Indication: URINARY TRACT INFECTION
     Dosage: UNK, (TWO A DAY)
     Route: 048
     Dates: start: 20160119

REACTIONS (2)
  - Drug effect incomplete [Unknown]
  - Micturition disorder [Unknown]
